FAERS Safety Report 7416120-3 (Version None)
Quarter: 2011Q2

REPORT INFORMATION
  Report Type: 
  Country: None (occurrence: None)
  Receive Date: 20110414
  Receipt Date: 20110316
  Transmission Date: 20111010
  Serious: No
  Sender: FDA-Public Use
  Company Number: US-BAYER-2011-024683

PATIENT
  Age: 75 Year
  Sex: Male
  Weight: 77 kg

DRUGS (2)
  1. ALEVE (CAPLET) [Suspect]
     Indication: ARTHRITIS
     Dosage: 1 DF, QD
     Dates: start: 20110310, end: 20110311
  2. SIMVASTATIN [Concomitant]
     Dosage: UNK

REACTIONS (1)
  - HEART RATE INCREASED [None]
